FAERS Safety Report 9803552 (Version 1)
Quarter: 2014Q1

REPORT INFORMATION
  Report Type: Report from Study
  Country: LB (occurrence: LB)
  Receive Date: 20140108
  Receipt Date: 20140108
  Transmission Date: 20141002
  Serious: Yes (Hospitalization, Other)
  Sender: FDA-Public Use
  Company Number: LB-SA-2014SA000729

PATIENT
  Age: 64 Year
  Sex: Female

DRUGS (8)
  1. LANTUS [Suspect]
     Indication: PRODUCT USED FOR UNKNOWN INDICATION
     Route: 065
     Dates: start: 2013
  2. DICLOFENAC SODIUM [Concomitant]
  3. NOVONORM [Concomitant]
  4. GALVUS [Concomitant]
  5. LASIX [Concomitant]
  6. ALDACTONE [Concomitant]
  7. INDERAL [Concomitant]
  8. DUPHALAC [Concomitant]

REACTIONS (1)
  - Pancreatic disorder [Unknown]
